FAERS Safety Report 18015732 (Version 11)
Quarter: 2022Q4

REPORT INFORMATION
  Report Type: Spontaneous
  Country: US (occurrence: US)
  Receive Date: 20200713
  Receipt Date: 20221230
  Transmission Date: 20230113
  Serious: No
  Sender: FDA-Public Use
  Company Number: US-PFIZER INC-2020266928

PATIENT
  Age: 58 Year
  Sex: Male

DRUGS (5)
  1. INLYTA [Suspect]
     Active Substance: AXITINIB
     Dosage: 5 MG
     Dates: start: 20200615
  2. INLYTA [Suspect]
     Active Substance: AXITINIB
     Dosage: 5 MG
     Dates: start: 20200620
  3. INLYTA [Suspect]
     Active Substance: AXITINIB
     Dosage: 5 MG
     Dates: start: 20200630
  4. INLYTA [Suspect]
     Active Substance: AXITINIB
     Dosage: 5 MG
  5. INLYTA [Suspect]
     Active Substance: AXITINIB
     Dosage: ALTERNATING 1 TABLET DAY AND 1 TABLET TWICE A DAY

REACTIONS (21)
  - Asthenia [Unknown]
  - Nausea [Unknown]
  - Dyspnoea [Unknown]
  - Dry skin [Not Recovered/Not Resolved]
  - Hypoaesthesia [Unknown]
  - Genital lesion [Not Recovered/Not Resolved]
  - Skin lesion [Not Recovered/Not Resolved]
  - Erythema [Unknown]
  - Pollakiuria [Unknown]
  - Lip blister [Unknown]
  - Glossodynia [Unknown]
  - Swollen tongue [Unknown]
  - Pain in extremity [Not Recovered/Not Resolved]
  - Skin fissures [Unknown]
  - Joint swelling [Unknown]
  - Hordeolum [Unknown]
  - Fatigue [Unknown]
  - Onychoclasis [Unknown]
  - COVID-19 [Unknown]
  - Off label use [Unknown]
  - Product use issue [Unknown]
